FAERS Safety Report 13456718 (Version 2)
Quarter: 2017Q2

REPORT INFORMATION
  Report Type: Spontaneous
  Country: IL (occurrence: IL)
  Receive Date: 20170418
  Receipt Date: 20170503
  Transmission Date: 20170830
  Serious: Yes (Other)
  Sender: FDA-Public Use
  Company Number: IL-TAKEDA-2017TUS007881

PATIENT
  Age: 30 Year
  Sex: Male

DRUGS (2)
  1. RAFASSAL [Concomitant]
     Dosage: UNK
  2. ENTYVIO [Suspect]
     Active Substance: VEDOLIZUMAB
     Indication: CROHN^S DISEASE
     Dosage: 300 MG, UNK
     Route: 042
     Dates: start: 201607

REACTIONS (2)
  - Cytomegalovirus mononucleosis [Recovered/Resolved]
  - Liver function test abnormal [Recovering/Resolving]
